FAERS Safety Report 4509225-8 (Version None)
Quarter: 2004Q4

REPORT INFORMATION
  Report Type: 
  Country: None (occurrence: None)
  Receive Date: 20041123
  Receipt Date: 20041002
  Transmission Date: 20050328
  Serious: Yes (Hospitalization)
  Sender: FDA-Public Use
  Company Number: DE-MERCK-0410DEU00016

PATIENT
  Age: 57 Year
  Sex: Male
  Weight: 86 kg

DRUGS (4)
  1. VIOXX [Suspect]
     Indication: JOINT STIFFNESS
     Route: 048
     Dates: start: 20020208, end: 20040930
  2. VIOXX [Suspect]
     Indication: RADICULAR SYNDROME
     Route: 048
     Dates: start: 20020208, end: 20040930
  3. METFORMIN [Concomitant]
     Route: 065
  4. ROSIGLITAZONE MALEATE [Concomitant]
     Route: 065

REACTIONS (1)
  - MYOCARDIAL INFARCTION [None]
